FAERS Safety Report 17352103 (Version 3)
Quarter: 2022Q1

REPORT INFORMATION
  Report Type: Spontaneous
  Country: US (occurrence: US)
  Receive Date: 20200130
  Receipt Date: 20220107
  Transmission Date: 20220423
  Serious: No
  Sender: FDA-Public Use
  Company Number: US-PFIZER INC-2019153566

PATIENT
  Age: 55 Year
  Sex: Female
  Weight: 88.45 kg

DRUGS (3)
  1. RELPAX [Suspect]
     Active Substance: ELETRIPTAN HYDROBROMIDE
     Indication: Headache
     Dosage: 40 MG, (1 AS HEADACHE ONSET AS NEEDED AS DIRECTED)
     Route: 048
  2. RELPAX [Suspect]
     Active Substance: ELETRIPTAN HYDROBROMIDE
     Indication: Migraine
     Dosage: 40 MG, AS NEEDED
     Route: 048
  3. TOPAMAX [Concomitant]
     Active Substance: TOPIRAMATE
     Indication: Migraine
     Dosage: 150 MG, DAILY(50MG TABLET IN THE MORNING AND TWO 50MG TABLETS AT NIGHT)

REACTIONS (1)
  - Hypertension [Unknown]
